FAERS Safety Report 6194634-4 (Version None)
Quarter: 2009Q2

REPORT INFORMATION
  Report Type: 
  Country: None (occurrence: None)
  Receive Date: 20090515
  Receipt Date: 20090511
  Transmission Date: 20091009
  Serious: Yes (Hospitalization)
  Sender: FDA-Public Use
  Company Number: THQ2008A02085

PATIENT
  Age: 71 Year
  Sex: Female

DRUGS (12)
  1. LANSOPRAZOLE [Suspect]
     Route: 048
     Dates: start: 20080814, end: 20080904
  2. SEROPLEX FILM-COATED TABLETS (ESCITALOPRAM) [Suspect]
     Dosage: 10 MG
     Route: 048
     Dates: start: 20080823, end: 20080902
  3. ACETYLSALICYLATE LYSINE [Suspect]
  4. ACEBUTOLOL HYDROCHLORIDE [Suspect]
  5. SPIRONOLACTONE [Suspect]
  6. ALTIZIDE [Suspect]
  7. BROMAZEPAM [Suspect]
  8. OMEPRAZOLE SODIUM [Suspect]
     Dates: end: 20080814
  9. OMEPRAZOLE SODIUM [Suspect]
     Dates: start: 20080904
  10. PROMOTEROL FUMARATE, BUDESONIDE [Concomitant]
  11. FLUVASTATIN [Concomitant]
  12. BUDESONIDE [Concomitant]

REACTIONS (4)
  - CANDIDIASIS [None]
  - PRURITUS [None]
  - RASH MACULO-PAPULAR [None]
  - SEBORRHOEIC KERATOSIS [None]
